FAERS Safety Report 11500399 (Version 1)
Quarter: 2015Q3

REPORT INFORMATION
  Report Type: Spontaneous
  Country: US (occurrence: None)
  Receive Date: 20150911
  Receipt Date: 20150911
  Transmission Date: 20151125
  Serious: No
  Sender: FDA-Public Use
  Company Number: None

PATIENT
  Age: 2 Year
  Sex: Female
  Weight: 13.7 kg

DRUGS (7)
  1. HYDROCORTISONE. [Suspect]
     Active Substance: HYDROCORTISONE
     Dates: end: 20150903
  2. MITOXANTRONE HYDROCHLORIDE. [Suspect]
     Active Substance: MITOXANTRONE HYDROCHLORIDE
     Dates: end: 20150815
  3. METHOTREXATE [Suspect]
     Active Substance: METHOTREXATE
     Dates: end: 20150903
  4. CYTARABINE. [Suspect]
     Active Substance: CYTARABINE
     Dates: end: 20150903
  5. ONCASPAR [Suspect]
     Active Substance: PEGASPARGASE
     Dates: end: 20150830
  6. DEXAMETHASONE. [Suspect]
     Active Substance: DEXAMETHASONE
     Dates: end: 20150902
  7. VINCRISTINE SULFATE. [Suspect]
     Active Substance: VINCRISTINE SULFATE
     Dates: end: 20150904

REACTIONS (2)
  - Skin infection [None]
  - Mucormycosis [None]

NARRATIVE: CASE EVENT DATE: 20150909
